FAERS Safety Report 5866645-7 (Version None)
Quarter: 2008Q3

REPORT INFORMATION
  Report Type: 
  Country: None (occurrence: None)
  Receive Date: 20080902
  Receipt Date: 20080821
  Transmission Date: 20090109
  Serious: Yes (Hospitalization)
  Sender: FDA-Public Use
  Company Number: US-JNJFOC-20070705403

PATIENT
  Sex: Female
  Weight: 68.49 kg

DRUGS (10)
  1. TRAMADOL HYDROCHLORIDE [Suspect]
     Route: 048
  2. TRAMADOL HYDROCHLORIDE [Suspect]
     Indication: OSTEOARTHRITIS
     Route: 048
  3. MELOXICAM [Suspect]
     Route: 048
  4. MELOXICAM [Suspect]
     Indication: OSTEOARTHRITIS
     Route: 048
  5. CHONDROITIN/GLUCOSAMINE [Concomitant]
  6. MULTI-VITAMIN [Concomitant]
  7. DIPHENHYDRAMINE HCL [Concomitant]
  8. LOVAZA [Concomitant]
  9. TYLENOL (CAPLET) [Concomitant]
  10. TYLENOL (CAPLET) [Concomitant]

REACTIONS (2)
  - BLADDER PROLAPSE [None]
  - OPERATIVE HAEMORRHAGE [None]
